FAERS Safety Report 8336297 (Version 2)
Quarter: 2015Q2

REPORT INFORMATION
  Report Type: Report from Study
  Country: US (occurrence: US)
  Receive Date: 20120113
  Receipt Date: 20150616
  Transmission Date: 20150821
  Serious: Yes (Death)
  Sender: FDA-Public Use
  Company Number: US-ROCHE-1028651

PATIENT
  Sex: Male

DRUGS (2)
  1. XELODA [Suspect]
     Active Substance: CAPECITABINE
     Indication: RENAL CANCER
     Dosage: 500MG TAB-4TABS IN AM + 500MG-3TABS IN PM
     Route: 048
  2. XELODA [Suspect]
     Active Substance: CAPECITABINE
     Indication: THYROID CANCER
     Dosage: FOR 14 DAYS,OFF FOR 7 DAYS.
     Route: 048

REACTIONS (2)
  - Death [Fatal]
  - Off label use [Unknown]
